APPROVED DRUG PRODUCT: SODIUM ACETATE
Active Ingredient: SODIUM ACETATE
Strength: 200MEQ/100ML (2MEQ/ML)
Dosage Form/Route: SOLUTION;INTRAVENOUS
Application: A214805 | Product #003 | TE Code: AP
Applicant: MILLA PHARMACEUTICALS INC
Approved: May 4, 2021 | RLD: No | RS: No | Type: RX